FAERS Safety Report 15224752 (Version 1)
Quarter: 2018Q3

REPORT INFORMATION
  Report Type: Spontaneous
  Country: US (occurrence: US)
  Receive Date: 20180706
  Receipt Date: 20180706
  Transmission Date: 20181010
  Serious: Yes (Death)
  Sender: FDA-Public Use
  Company Number: None

PATIENT
  Age: 51 Year
  Sex: Female
  Weight: 74 kg

DRUGS (1)
  1. PALBOCICLIB [Suspect]
     Active Substance: PALBOCICLIB
     Dates: start: 20170815, end: 20170919

REACTIONS (15)
  - Axillary mass [None]
  - Haemothorax [None]
  - Lymphadenopathy mediastinal [None]
  - Dyspnoea [None]
  - Radiation associated pain [None]
  - Productive cough [None]
  - Respiratory fume inhalation disorder [None]
  - Malignant neoplasm progression [None]
  - Osteosclerosis [None]
  - Cough [None]
  - Paratracheal lymphadenopathy [None]
  - Pericardial effusion [None]
  - Pleural effusion [None]
  - Hilar lymphadenopathy [None]
  - Embolism venous [None]
